FAERS Safety Report 12749990 (Version 3)
Quarter: 2016Q4

REPORT INFORMATION
  Report Type: Report from Study
  Country: TR (occurrence: TR)
  Receive Date: 20160915
  Receipt Date: 20161114
  Transmission Date: 20170207
  Serious: Yes (Death, Hospitalization, Other)
  Sender: FDA-Public Use
  Company Number: DE-ACTELION-A-US2016-142332

PATIENT
  Age: 73 Year
  Sex: Male

DRUGS (3)
  1. VENTAVIS [Suspect]
     Active Substance: ILOPROST
     Dosage: 1 DF, 6/D
     Route: 055
  2. VENTAVIS [Suspect]
     Active Substance: ILOPROST
     Indication: PULMONARY ARTERIAL HYPERTENSION
     Dosage: UNK
     Route: 055
     Dates: start: 20160825
  3. VENTAVIS [Suspect]
     Active Substance: ILOPROST
     Dosage: 1 DF, 9/D
     Route: 055
     Dates: start: 20160825

REACTIONS (6)
  - Cough [Recovering/Resolving]
  - General physical health deterioration [Fatal]
  - Respiratory distress [Unknown]
  - Pulmonary hypertension [Unknown]
  - Epistaxis [Recovering/Resolving]
  - Mouth haemorrhage [Recovering/Resolving]

NARRATIVE: CASE EVENT DATE: 20160907
